FAERS Safety Report 13742352 (Version 1)
Quarter: 2017Q3

REPORT INFORMATION
  Report Type: Report from Study
  Country: US (occurrence: US)
  Receive Date: 20170711
  Receipt Date: 20170711
  Transmission Date: 20171127
  Serious: Yes (Other)
  Sender: FDA-Public Use
  Company Number: US-ROCHE-1959418

PATIENT

DRUGS (1)
  1. ALTEPLASE. [Suspect]
     Active Substance: ALTEPLASE
     Indication: DEEP VEIN THROMBOSIS
     Route: 042

REACTIONS (6)
  - Gastrointestinal haemorrhage [Unknown]
  - Post thrombotic syndrome [Unknown]
  - Catheter site haematoma [Unknown]
  - Haemorrhage intracranial [Unknown]
  - Pulmonary embolism [Unknown]
  - Ecchymosis [Unknown]
